FAERS Safety Report 7513797-9 (Version None)
Quarter: 2011Q2

REPORT INFORMATION
  Report Type: 
  Country: None (occurrence: None)
  Receive Date: 20110531
  Receipt Date: 20110524
  Transmission Date: 20111010
  Serious: Yes (Hospitalization)
  Sender: FDA-Public Use
  Company Number: PHHY2011IT44243

PATIENT
  Sex: Male

DRUGS (2)
  1. LANSOPRAZOLE [Suspect]
     Dosage: UNK UKN, UNK
  2. TRIAZOLAM [Suspect]
     Dosage: UNK UKN, UNK

REACTIONS (2)
  - RASH [None]
  - CONDITION AGGRAVATED [None]
